FAERS Safety Report 14177533 (Version 1)
Quarter: 2017Q4

REPORT INFORMATION
  Report Type: Spontaneous
  Country: FR (occurrence: FR)
  Receive Date: 20171110
  Receipt Date: 20171110
  Transmission Date: 20180321
  Serious: Yes (Hospitalization)
  Sender: FDA-Public Use
  Company Number: FR-009507513-1711FRA004137

PATIENT
  Age: 77 Year
  Sex: Male

DRUGS (20)
  1. PREDNISOLONE. [Suspect]
     Active Substance: PREDNISOLONE
     Dosage: 67 MG, CYCLE 2,1 IN CYCLE 1
     Route: 048
     Dates: start: 20170809, end: 20170809
  2. DOCETAXEL. [Suspect]
     Active Substance: DOCETAXEL
     Dosage: 75 MG/M2 (130 MG), CYCLE 3, 1 IN CYCLE 1
     Route: 042
     Dates: start: 20170830, end: 20170830
  3. FENOFIBRATE. [Suspect]
     Active Substance: FENOFIBRATE
     Indication: DYSLIPIDAEMIA
     Dosage: 160 MG, QD
     Route: 048
  4. SETOFILM [Suspect]
     Active Substance: ONDANSETRON
     Dosage: 8 MG, CYCLE 3,1 IN CYCLE 1
     Route: 048
     Dates: start: 20170830, end: 20170830
  5. OMEPRAZOLE. [Suspect]
     Active Substance: OMEPRAZOLE
     Indication: PRODUCT USED FOR UNKNOWN INDICATION
     Dosage: 40 MG, QD
     Route: 048
     Dates: end: 20171024
  6. EZETROL [Suspect]
     Active Substance: EZETIMIBE
     Indication: DYSLIPIDAEMIA
     Dosage: 10 MG, QD
     Route: 048
  7. DOCETAXEL. [Suspect]
     Active Substance: DOCETAXEL
     Dosage: 75 MG/M2 (130 MG), CYCLE 4, 1 IN CYCLE 1
     Route: 042
     Dates: start: 20170920, end: 20170920
  8. PREDNISOLONE. [Suspect]
     Active Substance: PREDNISOLONE
     Dosage: 67 MG, CYCLE 4,1 IN CYCLE 1
     Route: 048
     Dates: start: 20170920, end: 20170920
  9. SETOFILM [Suspect]
     Active Substance: ONDANSETRON
     Dosage: 8 MG, CYCLE 2,1 IN CYCLE 1
     Route: 048
     Dates: start: 20170809, end: 20170809
  10. PREDNISOLONE. [Suspect]
     Active Substance: PREDNISOLONE
     Indication: PROPHYLAXIS OF NAUSEA AND VOMITING
     Dosage: 67 MG, CYCLE 1,1 IN CYCLE 1
     Route: 048
     Dates: start: 201706, end: 201706
  11. PREDNISOLONE. [Suspect]
     Active Substance: PREDNISOLONE
     Dosage: 67 MG, CYCLE 3,1 IN CYCLE 1
     Route: 048
     Dates: start: 20170830, end: 20170830
  12. SETOFILM [Suspect]
     Active Substance: ONDANSETRON
     Dosage: 8 MG, CYCLE 4,1 IN CYCLE 1
     Route: 048
     Dates: start: 20170920, end: 20170920
  13. PREDNISOLONE. [Suspect]
     Active Substance: PREDNISOLONE
     Dosage: 67 MG, CYCLE 5,1 IN CYCLE 1
     Route: 048
     Dates: start: 20171010, end: 20171010
  14. DOCETAXEL. [Suspect]
     Active Substance: DOCETAXEL
     Dosage: 75 MG/M2 (130 MG), CYCLE 2, 1 IN CYCLE 1
     Route: 042
     Dates: start: 20170809, end: 20170809
  15. DOCETAXEL. [Suspect]
     Active Substance: DOCETAXEL
     Dosage: 75 MG/M2 (130 MG), CYCLE 5, 1 IN CYCLE 1
     Route: 042
     Dates: start: 20171010, end: 20171010
  16. KARDEGIC [Suspect]
     Active Substance: ASPIRIN DL-LYSINE
     Indication: CAROTID ARTERY STENOSIS
     Dosage: 75 MG, QD
     Route: 048
  17. DOCETAXEL. [Suspect]
     Active Substance: DOCETAXEL
     Indication: PROSTATE CANCER
     Dosage: 75 MG/M2 (130 MG), CYCLE 1, 1 IN CYCLE 1
     Route: 042
     Dates: start: 201706, end: 201706
  18. SETOFILM [Suspect]
     Active Substance: ONDANSETRON
     Indication: PROPHYLAXIS OF NAUSEA AND VOMITING
     Dosage: 8 MG, CYCLE 1,1 IN CYCLE 1
     Route: 048
     Dates: start: 201706, end: 201706
  19. SETOFILM [Suspect]
     Active Substance: ONDANSETRON
     Dosage: 8 MG, CYCLE 5,1 IN CYCLE 1
     Route: 048
     Dates: start: 20171010, end: 20171010
  20. ZOLADEX [Suspect]
     Active Substance: GOSERELIN ACETATE
     Indication: PROSTATE CANCER
     Dosage: 1 DF QUARTERLY
     Route: 058

REACTIONS (2)
  - Dyspnoea [Not Recovered/Not Resolved]
  - Lung disorder [Not Recovered/Not Resolved]

NARRATIVE: CASE EVENT DATE: 20171018
